FAERS Safety Report 21655244 (Version 1)
Quarter: 2022Q4

REPORT INFORMATION
  Report Type: Spontaneous
  Country: IT (occurrence: IT)
  Receive Date: 20221129
  Receipt Date: 20221129
  Transmission Date: 20230112
  Serious: Yes (Other)
  Sender: FDA-Public Use
  Company Number: None

PATIENT
  Age: 46 Year
  Sex: Male
  Weight: 80 kg

DRUGS (1)
  1. AZOPT [Suspect]
     Active Substance: BRINZOLAMIDE
     Indication: Glaucoma
     Dosage: 1 DRP, ((1/12 MILLILITRE), 1 GOCCIA 2 VOLTE/DI)

REACTIONS (1)
  - Eyelid myoclonus [Not Recovered/Not Resolved]

NARRATIVE: CASE EVENT DATE: 20221030
